FAERS Safety Report 10226661 (Version 1)
Quarter: 2014Q2

REPORT INFORMATION
  Report Type: Spontaneous
  Country: GB (occurrence: GB)
  Receive Date: 20140609
  Receipt Date: 20140609
  Transmission Date: 20141212
  Serious: Yes (Disabling, Other)
  Sender: FDA-Public Use
  Company Number: PHHY2014GB066608

PATIENT
  Age: 6 Decade
  Sex: Male
  Weight: 75 kg

DRUGS (4)
  1. METHOTREXATE [Suspect]
     Indication: RHEUMATOID ARTHRITIS
     Dosage: 20 MG, QW
     Route: 048
     Dates: start: 19950101, end: 20131101
  2. NSAID^S [Concomitant]
  3. PROTON PUMP INHIBITORS [Concomitant]
  4. ASPIRIN [Concomitant]

REACTIONS (4)
  - Hyperhomocysteinaemia [Recovered/Resolved with Sequelae]
  - Lethargy [Recovered/Resolved]
  - Depression [Recovered/Resolved with Sequelae]
  - Fatigue [Recovered/Resolved]
